FAERS Safety Report 7782863-5 (Version None)
Quarter: 2011Q3

REPORT INFORMATION
  Report Type: 
  Country: None (occurrence: None)
  Receive Date: 20110928
  Receipt Date: 20110920
  Transmission Date: 20111222
  Serious: Yes (Other)
  Sender: FDA-Public Use
  Company Number: PHEH2011US04655

PATIENT
  Sex: Male

DRUGS (2)
  1. SINEMET [Suspect]
     Dosage: UNK UKN, UNK
  2. EXELON [Suspect]
     Indication: DEMENTIA
     Dosage: UNK UKN, UNK
     Route: 062

REACTIONS (2)
  - DELIRIUM [None]
  - ABNORMAL BEHAVIOUR [None]
